FAERS Safety Report 9884125 (Version 2)
Quarter: 2014Q1

REPORT INFORMATION
  Report Type: Spontaneous
  Country: US (occurrence: US)
  Receive Date: 20140210
  Receipt Date: 20140210
  Transmission Date: 20141002
  Serious: No
  Sender: FDA-Public Use
  Company Number: US-ALLERGAN-1316329US

PATIENT
  Age: 42 Year
  Sex: Female

DRUGS (3)
  1. BOTOX [Suspect]
     Indication: SKIN WRINKLING
     Dosage: UNK UNK, SINGLE
     Route: 030
     Dates: start: 20131012, end: 20131012
  2. JUVEDERM [Concomitant]
     Indication: DERMAL FILLER INJECTION
     Dosage: UNK UNK, SINGLE
     Route: 023
     Dates: start: 20130927, end: 20130927
  3. JUVEDERM [Concomitant]
     Indication: DERMAL FILLER INJECTION

REACTIONS (4)
  - Swelling [Recovered/Resolved]
  - Skin infection [Recovered/Resolved]
  - Erythema [Recovered/Resolved]
  - Pain [Recovered/Resolved]
